FAERS Safety Report 5598653-8 (Version None)
Quarter: 2008Q1

REPORT INFORMATION
  Report Type: 
  Country: None (occurrence: None)
  Receive Date: 20080122
  Receipt Date: 20080111
  Transmission Date: 20080703
  Serious: Yes (Other)
  Sender: FDA-Public Use
  Company Number: CN-ROCHE-541288

PATIENT
  Age: 58 Year
  Sex: Male
  Weight: 40 kg

DRUGS (1)
  1. XELODA [Suspect]
     Route: 048
     Dates: start: 20071005, end: 20071225

REACTIONS (4)
  - ALANINE AMINOTRANSFERASE INCREASED [None]
  - ANOREXIA [None]
  - FATIGUE [None]
  - WHITE BLOOD CELL COUNT INCREASED [None]
